FAERS Safety Report 8800123 (Version 1)
Quarter: 2012Q4

REPORT INFORMATION
  Report Type: Spontaneous
  Country: US (occurrence: None)
  Receive Date: 20120918
  Receipt Date: 20120918
  Transmission Date: 20130627
  Serious: No
  Sender: FDA-Public Use
  Company Number: None

PATIENT
  Age: 58 Year
  Sex: Female

DRUGS (1)
  1. ZAVESCA [Suspect]
     Indication: GAUCHER^S DISEASE
     Dates: start: 1993

REACTIONS (1)
  - Diarrhoea [None]
